FAERS Safety Report 21353983 (Version 2)
Quarter: 2022Q4

REPORT INFORMATION
  Report Type: Spontaneous
  Country: US (occurrence: US)
  Receive Date: 20220920
  Receipt Date: 20221014
  Transmission Date: 20230112
  Serious: No
  Sender: FDA-Public Use
  Company Number: US-GSKCCFUS-Case-01497595_AE-85270

PATIENT
  Sex: Male

DRUGS (1)
  1. FLOVENT HFA [Suspect]
     Active Substance: FLUTICASONE PROPIONATE
     Indication: Product used for unknown indication
     Dosage: UNK HAD TO SPRAY THE DEVICE 8 TIMES TO GET 4 FULL DOSES, 110MCG INH 134A DC 120D

REACTIONS (2)
  - Extra dose administered [Unknown]
  - Product complaint [Unknown]
